FAERS Safety Report 14527670 (Version 1)
Quarter: 2018Q1

REPORT INFORMATION
  Report Type: Spontaneous
  Country: US (occurrence: US)
  Receive Date: 20180213
  Receipt Date: 20180213
  Transmission Date: 20180509
  Serious: No
  Sender: FDA-Public Use
  Company Number: US-LUNDBECK-DKLU2041860

PATIENT
  Age: 66 Year
  Sex: Female

DRUGS (1)
  1. NORTHERA [Suspect]
     Active Substance: DROXIDOPA
     Indication: PRODUCT USED FOR UNKNOWN INDICATION
     Dosage: SCHEDULE B (TITRATING)
     Route: 048
     Dates: start: 20171223

REACTIONS (2)
  - Blood pressure systolic increased [Unknown]
  - Blood pressure diastolic decreased [Unknown]

NARRATIVE: CASE EVENT DATE: 20171225
